FAERS Safety Report 9180121 (Version 2)
Quarter: 2013Q2

REPORT INFORMATION
  Report Type: Spontaneous
  Country: FR (occurrence: FR)
  Receive Date: 20130321
  Receipt Date: 20130403
  Transmission Date: 20140414
  Serious: Yes (Death, Hospitalization)
  Sender: FDA-Public Use
  Company Number: FR-PFIZER INC-2013088649

PATIENT
  Age: 58 Year
  Sex: Female

DRUGS (8)
  1. ARACYTINE [Suspect]
     Indication: ACUTE MYELOID LEUKAEMIA
     Dosage: 40 MG, 1X/DAY (SINGLE INJECTION)
     Route: 039
     Dates: start: 20120813, end: 20120813
  2. VENLAFAXINE HYDROCHLORIDE [Suspect]
     Dosage: 75 MG, 1X/DAY
     Route: 048
     Dates: start: 20120814, end: 20120821
  3. ALPRAZOLAM [Suspect]
     Dosage: 0.5 MG, 1X/DAY
     Route: 048
     Dates: start: 20120705, end: 20120828
  4. METHOTREXATE MERCK [Suspect]
     Indication: ACUTE MYELOID LEUKAEMIA
     Dosage: 15 MG, 1X/DAY (SINGLE INJECTION)
     Route: 039
     Dates: start: 20120813, end: 20120813
  5. CYTARABINE [Suspect]
     Indication: ACUTE MYELOID LEUKAEMIA
     Dosage: 4980 MG, 1X/DAY
     Route: 042
     Dates: start: 20120814, end: 20120819
  6. EMEND [Suspect]
     Dosage: 125 MG, 1X/DAY
     Route: 048
     Dates: start: 20120814, end: 20120818
  7. ACUPAN [Suspect]
     Dosage: 1 DF, 1X/DAY
     Route: 042
     Dates: start: 20120818
  8. ZOPHREN [Suspect]
     Dosage: 8 MG/4 ML, 1X/DAY
     Route: 042
     Dates: start: 20120814, end: 20120817

REACTIONS (10)
  - Status epilepticus [Fatal]
  - Encephalopathy [Fatal]
  - Coma [Fatal]
  - Sepsis [Fatal]
  - Bone marrow failure [Fatal]
  - Multi-organ failure [Fatal]
  - Colitis [Unknown]
  - Cholecystitis acute [Unknown]
  - Liver abscess [Unknown]
  - Cerebellar syndrome [Unknown]
